FAERS Safety Report 6238764-7 (Version None)
Quarter: 2009Q2

REPORT INFORMATION
  Report Type: 
  Country: None (occurrence: None)
  Receive Date: 20090617
  Receipt Date: 20090617
  Transmission Date: 20091009
  Serious: No
  Sender: FDA-Public Use
  Company Number: None

PATIENT
  Age: 48 Year
  Sex: Male
  Weight: 97.5234 kg

DRUGS (1)
  1. BUPROPION HCL [Suspect]
     Indication: DEPRESSION
     Dates: start: 20090612, end: 20090614

REACTIONS (4)
  - AGITATION [None]
  - ANXIETY [None]
  - DEPRESSION [None]
  - NIGHTMARE [None]
